FAERS Safety Report 11625356 (Version 3)
Quarter: 2017Q2

REPORT INFORMATION
  Report Type: Spontaneous
  Country: PE (occurrence: PE)
  Receive Date: 20151013
  Receipt Date: 20170629
  Transmission Date: 20170829
  Serious: Yes (Other)
  Sender: FDA-Public Use
  Company Number: PE-PFIZER INC-2015337048

PATIENT
  Age: 86 Year
  Sex: Female

DRUGS (3)
  1. AROMASIN [Suspect]
     Active Substance: EXEMESTANE
     Dosage: UNK
  2. AROMASIN [Suspect]
     Active Substance: EXEMESTANE
     Dosage: UNK
     Dates: start: 201701
  3. AROMASIN [Suspect]
     Active Substance: EXEMESTANE
     Dosage: UNK

REACTIONS (7)
  - Blindness [Unknown]
  - Retinal vascular thrombosis [Unknown]
  - Eye pain [Unknown]
  - Eye infection [Unknown]
  - Thyroid disorder [Unknown]
  - Intraocular pressure increased [Unknown]
  - Depression [Unknown]
